FAERS Safety Report 23021689 (Version 4)
Quarter: 2024Q2

REPORT INFORMATION
  Report Type: Spontaneous
  Country: CA (occurrence: CA)
  Receive Date: 20231003
  Receipt Date: 20240410
  Transmission Date: 20240716
  Serious: Yes (Other)
  Sender: FDA-Public Use
  Company Number: CA-PFIZER INC-202300266716

PATIENT
  Age: 32 Year
  Sex: Female
  Weight: 85 kg

DRUGS (3)
  1. RUXIENCE [Suspect]
     Active Substance: RITUXIMAB-PVVR
     Indication: Multiple sclerosis
     Dosage: 1 DF (1000MG), DAY 1 AND DAY 15RETREATMENT - Q6 MONTHS
     Route: 042
     Dates: start: 20230921, end: 20230921
  2. RUXIENCE [Suspect]
     Active Substance: RITUXIMAB-PVVR
     Dosage: 1000 MG, DAY 1 AND DAY 15RETREATMENT Q6 MONTHS 1000MG
     Route: 042
     Dates: start: 20231004, end: 20231004
  3. RUXIENCE [Suspect]
     Active Substance: RITUXIMAB-PVVR
     Dosage: 1000 MG, DAY 1 AND DAY 15RETREATMENT - Q6 MONTHS (DAY 1)
     Route: 042
     Dates: start: 20240404

REACTIONS (10)
  - Anaphylactic reaction [Recovered/Resolved]
  - Throat irritation [Recovered/Resolved]
  - Flushing [Recovered/Resolved]
  - Rash papular [Recovered/Resolved]
  - Dysphagia [Recovered/Resolved]
  - Nasopharyngitis [Unknown]
  - Stomatitis [Not Recovered/Not Resolved]
  - Glossodynia [Not Recovered/Not Resolved]
  - Lip disorder [Unknown]
  - Off label use [Unknown]

NARRATIVE: CASE EVENT DATE: 20230101
